FAERS Safety Report 10258091 (Version 1)
Quarter: 2014Q2

REPORT INFORMATION
  Report Type: Report from Study
  Country: ES (occurrence: ES)
  Receive Date: 20140625
  Receipt Date: 20140625
  Transmission Date: 20141212
  Serious: Yes (Hospitalization)
  Sender: FDA-Public Use
  Company Number: ES-JNJFOC-20131213698

PATIENT
  Age: 60 Year
  Sex: Female
  Weight: 93 kg

DRUGS (10)
  1. XARELTO [Suspect]
     Indication: EMBOLISM VENOUS
     Route: 048
     Dates: start: 20130607, end: 20131203
  2. XARELTO [Suspect]
     Indication: EMBOLISM VENOUS
     Route: 048
     Dates: start: 20130517, end: 20130606
  3. XARELTO [Suspect]
     Indication: DEEP VEIN THROMBOSIS
     Route: 048
     Dates: start: 20130607, end: 20131203
  4. XARELTO [Suspect]
     Indication: DEEP VEIN THROMBOSIS
     Route: 048
     Dates: start: 20130517, end: 20130606
  5. TOPAMAX [Concomitant]
     Route: 065
     Dates: start: 20070807
  6. ENALAPRIL [Concomitant]
     Route: 065
     Dates: start: 20010116
  7. ATENOLOL [Concomitant]
     Route: 065
     Dates: start: 20130626
  8. DISULFIRAM [Concomitant]
     Route: 065
     Dates: start: 20041124
  9. ZALDIAR [Concomitant]
     Route: 065
     Dates: start: 20130516
  10. ALPRAZOLAM [Concomitant]
     Route: 065
     Dates: start: 20070913

REACTIONS (1)
  - Ischaemic stroke [Recovered/Resolved]
